FAERS Safety Report 7653661-8 (Version None)
Quarter: 2011Q3

REPORT INFORMATION
  Report Type: 
  Country: None (occurrence: None)
  Receive Date: 20110803
  Receipt Date: 20110729
  Transmission Date: 20111222
  Serious: Yes (Hospitalization, Other)
  Sender: FDA-Public Use
  Company Number: FR-PFIZER INC-2011147317

PATIENT
  Age: 55 Year
  Sex: Male

DRUGS (13)
  1. INDAPAMIDE [Suspect]
     Dosage: 2MG/0.625MG, 1 DF PER DAY
     Route: 048
     Dates: end: 20110216
  2. LASIX [Suspect]
     Indication: HYPERTENSION
     Dosage: 40 MG SCORED TABLET, 1 DF PER DAY
     Route: 048
     Dates: start: 20100301, end: 20110216
  3. CLONAZEPAM [Concomitant]
  4. NEBIVOLOL [Concomitant]
     Indication: TACHYCARDIA
  5. PLAVIX [Concomitant]
     Dosage: 75
  6. ZOLOFT [Suspect]
     Dosage: UNK
     Route: 048
     Dates: end: 20110216
  7. PROCORALAN [Suspect]
     Indication: PERIPHERAL VASCULAR DISORDER
     Dosage: 2 DF, UNK
     Route: 048
     Dates: start: 20110131, end: 20110212
  8. ATORVASTATIN CALCIUM [Concomitant]
     Dosage: 40
  9. FUNGIZONE [Concomitant]
  10. AMLODIPINE BESYLATE [Concomitant]
     Dosage: 10
  11. PROCORALAN [Suspect]
     Indication: TACHYCARDIA
  12. NEBIVOLOL [Concomitant]
     Indication: PERIPHERAL VASCULAR DISORDER
     Dosage: 5 MG QUADRIC-SCORED TABLET
     Route: 048
     Dates: start: 20110131, end: 20110214
  13. ASPIRIN [Concomitant]
     Dosage: 75

REACTIONS (10)
  - ANAEMIA MACROCYTIC [None]
  - WEIGHT INCREASED [None]
  - ASTHENIA [None]
  - HYPONATRAEMIA [None]
  - DECREASED APPETITE [None]
  - HYPOKALAEMIA [None]
  - HYPERNATRAEMIA [None]
  - NAUSEA [None]
  - HYPERKALAEMIA [None]
  - DISEASE PROGRESSION [None]
